FAERS Safety Report 7360755-3 (Version None)
Quarter: 2011Q1

REPORT INFORMATION
  Report Type: 
  Country: None (occurrence: None)
  Receive Date: 20110318
  Receipt Date: 20110308
  Transmission Date: 20110831
  Serious: Yes (Hospitalization)
  Sender: FDA-Public Use
  Company Number: US-BAXTER-2011BH004838

PATIENT
  Sex: Female

DRUGS (1)
  1. DIANEAL [Suspect]
     Indication: RENAL FAILURE CHRONIC
     Route: 033
     Dates: start: 20100301

REACTIONS (6)
  - DYSPNOEA [None]
  - PROCEDURAL COMPLICATION [None]
  - BACK PAIN [None]
  - SPINAL FRACTURE [None]
  - VOMITING [None]
  - ABDOMINAL DISTENSION [None]
